FAERS Safety Report 13538623 (Version 1)
Quarter: 2017Q2

REPORT INFORMATION
  Report Type: Spontaneous
  Country: CA (occurrence: CA)
  Receive Date: 20170512
  Receipt Date: 20170512
  Transmission Date: 20170830
  Serious: Yes (Hospitalization)
  Sender: FDA-Public Use
  Company Number: CA-ROCHE-1930550

PATIENT
  Age: 12 Year
  Sex: Female
  Weight: 64 kg

DRUGS (15)
  1. INFLIXIMAB [Suspect]
     Active Substance: INFLIXIMAB
     Indication: RHEUMATOID ARTHRITIS
     Dosage: CYCLIC
     Route: 042
  2. ETANERCEPT [Suspect]
     Active Substance: ETANERCEPT
     Indication: RHEUMATOID ARTHRITIS
     Route: 058
  3. ETANERCEPT [Suspect]
     Active Substance: ETANERCEPT
     Dosage: CYCLIC
     Route: 058
  4. INFLIXIMAB [Suspect]
     Active Substance: INFLIXIMAB
     Route: 042
  5. TOCILIZUMAB [Suspect]
     Active Substance: TOCILIZUMAB
     Indication: RHEUMATOID ARTHRITIS
     Dosage: CYCLICAL
     Route: 042
  6. ADALIMUMAB [Suspect]
     Active Substance: ADALIMUMAB
     Indication: RHEUMATOID ARTHRITIS
     Route: 065
  7. PREDNISONE. [Suspect]
     Active Substance: PREDNISONE
     Indication: RHEUMATOID ARTHRITIS
     Dosage: 50 MG TABLET
     Route: 065
  8. APO-HYDROXYQUINE [Suspect]
     Active Substance: HYDROXYCHLOROQUINE SULFATE
     Indication: RHEUMATOID ARTHRITIS
     Route: 048
  9. NAPROXEN. [Suspect]
     Active Substance: NAPROXEN
     Indication: RHEUMATOID ARTHRITIS
     Route: 065
  10. TRIAMCINOLONE ACETONIDE. [Suspect]
     Active Substance: TRIAMCINOLONE ACETONIDE
     Indication: RHEUMATOID ARTHRITIS
     Dosage: SUSPENSION INTRA-ARTICULAR
     Route: 014
  11. HUMAN IMMUNOGLOBULIN G [Suspect]
     Active Substance: HUMAN IMMUNOGLOBULIN G
     Indication: RHEUMATOID ARTHRITIS
     Route: 042
  12. ANAKINRA [Suspect]
     Active Substance: ANAKINRA
     Indication: RHEUMATOID ARTHRITIS
     Route: 058
  13. SULFASALAZINE. [Suspect]
     Active Substance: SULFASALAZINE
     Indication: RHEUMATOID ARTHRITIS
     Dosage: 500 MG TABLET
     Route: 048
  14. ABATACEPT [Suspect]
     Active Substance: ABATACEPT
     Indication: RHEUMATOID ARTHRITIS
     Route: 042
  15. METHOTREXATE SODIUM. [Suspect]
     Active Substance: METHOTREXATE SODIUM
     Indication: RHEUMATOID ARTHRITIS
     Route: 065

REACTIONS (16)
  - Synovitis [Unknown]
  - Body height below normal [Unknown]
  - Joint destruction [Unknown]
  - Human antichimeric antibody positive [Unknown]
  - Diarrhoea [Unknown]
  - Dizziness [Unknown]
  - Obesity [Unknown]
  - Nausea [Unknown]
  - Bone density decreased [Unknown]
  - Condition aggravated [Unknown]
  - Adrenal insufficiency [Unknown]
  - Drug effect decreased [Unknown]
  - Drug ineffective [Unknown]
  - Vomiting [Unknown]
  - Rheumatoid arthritis [Unknown]
  - Septic shock [Unknown]
